FAERS Safety Report 8534829-5 (Version None)
Quarter: 2012Q3

REPORT INFORMATION
  Report Type: 
  Country: None (occurrence: None)
  Receive Date: 20120724
  Receipt Date: 20120716
  Transmission Date: 20120928
  Serious: Yes (Hospitalization, Other)
  Sender: FDA-Public Use
  Company Number: US-JNJFOC-20120700584

PATIENT
  Sex: Female
  Weight: 64.86 kg

DRUGS (21)
  1. DIGOXIN [Concomitant]
     Indication: ATRIAL FIBRILLATION
     Route: 048
     Dates: start: 20120708
  2. NEXIUM [Concomitant]
     Indication: GASTROINTESTINAL DISORDER
     Route: 048
     Dates: start: 19900101
  3. IRON [Concomitant]
     Indication: MINERAL SUPPLEMENTATION
     Route: 048
  4. XARELTO [Suspect]
     Indication: CEREBROVASCULAR ACCIDENT PROPHYLAXIS
     Route: 048
     Dates: start: 20120628
  5. METOPROLOL SUCCINATE [Concomitant]
     Indication: HYPERTENSION
     Dosage: IN AM
     Route: 048
     Dates: start: 19900101
  6. METOPROLOL SUCCINATE [Concomitant]
     Dosage: IN PM
     Route: 048
     Dates: start: 19900101
  7. ZETIA [Concomitant]
     Indication: BLOOD CHOLESTEROL INCREASED
     Dosage: DATE STARTED REPORTED AS 15 YEARS AGO
     Route: 048
     Dates: start: 20020101
  8. DIOVAN [Concomitant]
     Indication: HYPERTENSION
     Route: 048
     Dates: start: 20020101
  9. ALL OTHER THERAPEUTIC PRODUCTS [Concomitant]
     Indication: HYPERTENSION
     Dosage: DRUG REPORTED AS ^SOLOAR^
     Dates: start: 20050101
  10. DIGOXIN [Concomitant]
     Indication: HEART RATE INCREASED
     Route: 048
     Dates: start: 20120708
  11. CITRACAL [Concomitant]
     Indication: MINERAL SUPPLEMENTATION
     Route: 048
  12. NASONEX [Concomitant]
     Indication: ASTHMA
     Route: 045
  13. HERBAL PREPARATION [Concomitant]
     Indication: BLOOD CHOLESTEROL INCREASED
  14. ZANTAC [Concomitant]
     Indication: GASTROINTESTINAL DISORDER
     Route: 048
     Dates: start: 19900101
  15. SINGULAIR [Concomitant]
     Indication: ASTHMA
     Route: 048
  16. VITAMIN D [Concomitant]
     Indication: VITAMIN SUPPLEMENTATION
     Route: 048
  17. XARELTO [Suspect]
     Indication: ATRIAL FIBRILLATION
     Route: 048
     Dates: start: 20120628
  18. ASTELIN [Concomitant]
     Indication: ASTHMA
     Route: 045
     Dates: start: 19960101
  19. PROAIR HFA [Concomitant]
     Indication: ASTHMA
     Route: 055
  20. ADVAIR DISKUS 100/50 [Concomitant]
     Indication: ASTHMA
     Dosage: DOSE REPORTED AS 250/50
     Route: 055
     Dates: start: 19960101
  21. NISOLDIPINE [Concomitant]
     Indication: BLOOD PRESSURE
     Route: 048

REACTIONS (5)
  - PARAESTHESIA [None]
  - GINGIVAL BLEEDING [None]
  - HYPOAESTHESIA [None]
  - INAPPROPRIATE SCHEDULE OF DRUG ADMINISTRATION [None]
  - CARDIAC DISORDER [None]
